FAERS Safety Report 14114140 (Version 1)
Quarter: 2017Q4

REPORT INFORMATION
  Report Type: Spontaneous
  Country: JP (occurrence: JP)
  Receive Date: 20171023
  Receipt Date: 20171023
  Transmission Date: 20180321
  Serious: Yes (Other)
  Sender: FDA-Public Use
  Company Number: JP-009507513-1710JPN001563J

PATIENT
  Age: 79 Year
  Sex: Male

DRUGS (2)
  1. RAMELTEON [Concomitant]
     Active Substance: RAMELTEON
     Dosage: UNK
     Route: 065
  2. BELSOMRA [Suspect]
     Active Substance: SUVOREXANT
     Dosage: UNK
     Route: 048

REACTIONS (1)
  - Delirium [Unknown]
